FAERS Safety Report 4582521-4 (Version None)
Quarter: 2005Q1

REPORT INFORMATION
  Report Type: 
  Country: None (occurrence: None)
  Receive Date: 20050211
  Receipt Date: 20050211
  Transmission Date: 20050727
  Serious: Yes (Other)
  Sender: FDA-Public Use
  Company Number: None

PATIENT
  Age: 54 Year
  Sex: Female
  Weight: 70.3075 kg

DRUGS (3)
  1. RISPERDAL [Suspect]
     Indication: BIPOLAR DISORDER
     Dosage: 4 MG PO HS
     Route: 048
     Dates: start: 20050116, end: 20050130
  2. RISPERDAL [Suspect]
     Indication: MANIA
     Dosage: 4 MG PO HS
     Route: 048
     Dates: start: 20050116, end: 20050130
  3. LITHIUM [Suspect]
     Dosage: 300 M Q AM AND 600 MG Q AM
     Dates: start: 20050120

REACTIONS (2)
  - DROOLING [None]
  - EXTRAPYRAMIDAL DISORDER [None]
